FAERS Safety Report 9201261 (Version 1)
Quarter: 2013Q2

REPORT INFORMATION
  Report Type: Spontaneous
  Country: US (occurrence: US)
  Receive Date: 20130401
  Receipt Date: 20130401
  Transmission Date: 20140414
  Serious: Yes (Other)
  Sender: FDA-Public Use
  Company Number: US-BAYER-2013-036676

PATIENT
  Sex: 0

DRUGS (1)
  1. CIPRO [Suspect]

REACTIONS (2)
  - Mental status changes [None]
  - Urticaria [None]
